FAERS Safety Report 15198276 (Version 3)
Quarter: 2018Q4

REPORT INFORMATION
  Report Type: Spontaneous
  Country: PT (occurrence: PT)
  Receive Date: 20180725
  Receipt Date: 20181027
  Transmission Date: 20190204
  Serious: Yes (Disabling)
  Sender: FDA-Public Use
  Company Number: PT-009507513-1807PRT008116

PATIENT
  Age: 28 Year
  Sex: Female

DRUGS (1)
  1. IMPLANON [Suspect]
     Active Substance: ETONOGESTREL
     Dosage: 1 IMPLANT
     Route: 059
     Dates: start: 20180618, end: 2018

REACTIONS (5)
  - Implant site pain [Recovered/Resolved]
  - Medical device site joint movement impairment [Recovered/Resolved]
  - Menorrhagia [Recovered/Resolved]
  - Weight decreased [Recovered/Resolved]
  - Implant site mass [Recovered/Resolved]

NARRATIVE: CASE EVENT DATE: 2018
